FAERS Safety Report 19064274 (Version 1)
Quarter: 2021Q1

REPORT INFORMATION
  Report Type: Spontaneous
  Country: IT (occurrence: IT)
  Receive Date: 20210326
  Receipt Date: 20210326
  Transmission Date: 20210420
  Serious: Yes (Other)
  Sender: FDA-Public Use
  Company Number: IT-MYLANLABS-2021M1018214

PATIENT
  Age: 70 Year
  Sex: Male

DRUGS (8)
  1. CETUXIMAB. [Concomitant]
     Active Substance: CETUXIMAB
     Indication: METASTASES TO BONE
  2. CETUXIMAB. [Concomitant]
     Active Substance: CETUXIMAB
     Indication: POROCARCINOMA
     Dosage: 400 MILLIGRAM/SQ. METER, TOTAL
     Route: 065
     Dates: start: 2020, end: 2020
  3. CETUXIMAB. [Concomitant]
     Active Substance: CETUXIMAB
     Indication: METASTASES TO LUNG
  4. CAPECITABINE. [Suspect]
     Active Substance: CAPECITABINE
     Indication: METASTASES TO SKIN
  5. CAPECITABINE. [Suspect]
     Active Substance: CAPECITABINE
     Indication: POROCARCINOMA
     Dosage: 500 MILLIGRAM, BID, METRONOMIC...
     Route: 065
     Dates: start: 2020, end: 202006
  6. CETUXIMAB. [Concomitant]
     Active Substance: CETUXIMAB
     Indication: METASTASES TO SKIN
     Dosage: 250 MILLIGRAM/SQ. METER, QW
     Route: 065
     Dates: start: 2020, end: 2020
  7. CAPECITABINE. [Suspect]
     Active Substance: CAPECITABINE
     Indication: METASTASES TO LUNG
  8. CAPECITABINE. [Suspect]
     Active Substance: CAPECITABINE
     Indication: METASTASES TO BONE

REACTIONS (4)
  - Superinfection [Unknown]
  - Off label use [Unknown]
  - Palmar-plantar erythrodysaesthesia syndrome [Unknown]
  - Toxicity to various agents [Unknown]

NARRATIVE: CASE EVENT DATE: 2020
